FAERS Safety Report 23844974 (Version 1)
Quarter: 2024Q2

REPORT INFORMATION
  Report Type: Spontaneous
  Country: US (occurrence: US)
  Receive Date: 20240511
  Receipt Date: 20240511
  Transmission Date: 20240715
  Serious: No
  Sender: FDA-Public Use
  Company Number: US-SA-2024SA134145

PATIENT
  Age: 40 Year
  Sex: Male

DRUGS (2)
  1. ALPROLIX [Suspect]
     Active Substance: EFTRENONACOG ALFA
     Dosage: 2772 U, PRN
     Route: 042
  2. ALPROLIX [Suspect]
     Active Substance: EFTRENONACOG ALFA
     Dosage: 2772 U, PRN
     Route: 042

REACTIONS (2)
  - Post procedural swelling [Unknown]
  - Ankle operation [Unknown]

NARRATIVE: CASE EVENT DATE: 20231226
